FAERS Safety Report 25951695 (Version 1)
Quarter: 2025Q4

REPORT INFORMATION
  Report Type: Spontaneous
  Country: US (occurrence: US)
  Receive Date: 20251023
  Receipt Date: 20251023
  Transmission Date: 20260117
  Serious: Yes (Other)
  Sender: DR REDDYS
  Company Number: None

PATIENT
  Age: 42 Year
  Sex: Female

DRUGS (11)
  1. AMIODARONE [Suspect]
     Active Substance: AMIODARONE
     Indication: Supraventricular tachycardia
  2. DIGOXIN [Suspect]
     Active Substance: DIGOXIN
     Indication: Supraventricular tachycardia
  3. CLONAZEPAM [Concomitant]
     Active Substance: CLONAZEPAM
     Indication: Product used for unknown indication
  4. DIVALPROEX SODIUM [Concomitant]
     Active Substance: DIVALPROEX SODIUM
     Indication: Product used for unknown indication
  5. LEVOTHYROXINE [Concomitant]
     Active Substance: LEVOTHYROXINE
     Indication: Product used for unknown indication
  6. FUROSEMIDE [Concomitant]
     Active Substance: FUROSEMIDE
     Indication: Product used for unknown indication
  7. NADOLOL [Concomitant]
     Active Substance: NADOLOL
     Indication: Product used for unknown indication
  8. WARFARIN [Concomitant]
     Active Substance: WARFARIN
     Indication: Product used for unknown indication
     Dosage: (DOSING PER INR CLINIC)
  9. ATORVASTATIN [Concomitant]
     Active Substance: ATORVASTATIN
     Indication: Product used for unknown indication
     Dosage: NIGHTLY
  10. VITAMIN K [Concomitant]
     Active Substance: PHYTONADIONE
     Indication: Product used for unknown indication
  11. HEPARIN [Concomitant]
     Active Substance: HEPARIN SODIUM
     Indication: Anticoagulant therapy
     Dosage: HEPARIN DRIP
     Route: 041

REACTIONS (1)
  - Electrocardiogram QT prolonged [Recovered/Resolved]
